FAERS Safety Report 10890167 (Version 1)
Quarter: 2015Q1

REPORT INFORMATION
  Report Type: Spontaneous
  Country: CA (occurrence: CA)
  Receive Date: 20150305
  Receipt Date: 20150305
  Transmission Date: 20150721
  Serious: Yes (Other)
  Sender: FDA-Public Use
  Company Number: CA-BAYER-2015-029581

PATIENT
  Age: 43 Year
  Sex: Female
  Weight: 63.49 kg

DRUGS (4)
  1. MIRENA [Suspect]
     Active Substance: LEVONORGESTREL
     Dosage: 20 MCG/24HR, CONT
     Route: 015
  2. TYLENOL WITH CODEINE [Concomitant]
     Active Substance: ACETAMINOPHEN\CODEINE PHOSPHATE
  3. GRAVOL [Concomitant]
     Active Substance: DIMENHYDRINATE
  4. TORADOL [Concomitant]
     Active Substance: KETOROLAC TROMETHAMINE

REACTIONS (11)
  - Abdominal pain lower [Not Recovered/Not Resolved]
  - Cystitis [Not Recovered/Not Resolved]
  - Headache [Not Recovered/Not Resolved]
  - Pain [Not Recovered/Not Resolved]
  - Haemorrhage [Not Recovered/Not Resolved]
  - Abdominal pain upper [Not Recovered/Not Resolved]
  - Pyrexia [Not Recovered/Not Resolved]
  - Sexual dysfunction [Not Recovered/Not Resolved]
  - Vaginismus [Not Recovered/Not Resolved]
  - Kidney infection [Not Recovered/Not Resolved]
  - Anxiety [Not Recovered/Not Resolved]
